FAERS Safety Report 6612404-7 (Version None)
Quarter: 2010Q1

REPORT INFORMATION
  Report Type: 
  Country: None (occurrence: None)
  Receive Date: 20100303
  Receipt Date: 20100218
  Transmission Date: 20100710
  Serious: Yes (Hospitalization)
  Sender: FDA-Public Use
  Company Number: PHHY2010CA06179

PATIENT
  Sex: Female

DRUGS (11)
  1. ACLASTA [Suspect]
     Indication: OSTEOPOROSIS
     Dosage: 5 MG, ONCE/SINGLE
     Dates: start: 20090121
  2. METHOTREXATE [Concomitant]
  3. NAPROXEN [Concomitant]
  4. PREVACID [Concomitant]
  5. ELTROXIN [Concomitant]
  6. VITAMIN D [Concomitant]
  7. CALCIUM [Concomitant]
  8. VENTOLIN [Concomitant]
  9. VITAMIN B-12 [Concomitant]
  10. TYLENOL-500 [Concomitant]
  11. OXEZE [Concomitant]

REACTIONS (4)
  - ACCIDENT [None]
  - FALL [None]
  - FEMUR FRACTURE [None]
  - INTRAMEDULLARY ROD INSERTION [None]
